FAERS Safety Report 6412787-7 (Version None)
Quarter: 2009Q4

REPORT INFORMATION
  Report Type: 
  Country: None (occurrence: None)
  Receive Date: 20091023
  Receipt Date: 20091013
  Transmission Date: 20100525
  Serious: Yes (Hospitalization, Other)
  Sender: FDA-Public Use
  Company Number: US-ELI_LILLY_AND_COMPANY-US200910004308

PATIENT
  Sex: Female

DRUGS (6)
  1. FORTEO [Suspect]
     Indication: OSTEOPOROSIS
     Dosage: 20 UG, DAILY (1/D)
     Dates: start: 20070101, end: 20070801
  2. FORTEO [Suspect]
     Dosage: 20 UG, DAILY (1/D)
     Dates: start: 20090922
  3. PREDNISONE [Concomitant]
     Dosage: 10 MG, 3/D
     Dates: start: 20090101
  4. LISINOPRIL [Concomitant]
     Dosage: 10 MG, DAILY (1/D)
     Dates: start: 20090101
  5. CLONAZEPAM [Concomitant]
     Dosage: 10 MG, DAILY (1/D)
     Dates: start: 20090101
  6. IMMUNGLOBULIN /01995701/ [Concomitant]
     Dosage: UNK, MONTHLY (1/M)
     Dates: start: 20090101

REACTIONS (12)
  - BACK PAIN [None]
  - DECREASED ACTIVITY [None]
  - DIPLOPIA [None]
  - DYSPHAGIA [None]
  - IMMUNODEFICIENCY [None]
  - MOOD SWINGS [None]
  - MUSCLE FATIGUE [None]
  - MYASTHENIA GRAVIS [None]
  - NEOPLASM OF THYMUS [None]
  - POSTURE ABNORMAL [None]
  - RIB FRACTURE [None]
  - THORACIC VERTEBRAL FRACTURE [None]
